FAERS Safety Report 10266002 (Version 1)
Quarter: 2014Q2

REPORT INFORMATION
  Report Type: Report from Study
  Country: CA (occurrence: CA)
  Receive Date: 20140627
  Receipt Date: 20140627
  Transmission Date: 20141212
  Serious: Yes (Hospitalization)
  Sender: FDA-Public Use
  Company Number: CA-VERTEX PHARMACEUTICALS INC-2014-002862

PATIENT
  Age: 58 Year
  Sex: Female

DRUGS (4)
  1. TELAPREVIR [Suspect]
     Indication: CHRONIC HEPATITIS C
     Dosage: 750 MG, TID
     Route: 048
     Dates: start: 20140508, end: 20140604
  2. PEGASYS [Concomitant]
     Indication: PRODUCT USED FOR UNKNOWN INDICATION
     Dosage: UNK
     Route: 065
     Dates: start: 20140508, end: 20140604
  3. COPEGUS [Concomitant]
     Indication: PRODUCT USED FOR UNKNOWN INDICATION
     Dosage: UNK
     Route: 065
     Dates: start: 20140508, end: 20140604
  4. OTHER THERAPEUTIC PRODUCTS [Concomitant]
     Indication: ANXIETY
     Route: 065

REACTIONS (5)
  - Transfusion [Not Recovered/Not Resolved]
  - Dyspnoea [Not Recovered/Not Resolved]
  - Swelling [Not Recovered/Not Resolved]
  - Epistaxis [Not Recovered/Not Resolved]
  - Asthenia [Not Recovered/Not Resolved]
